FAERS Safety Report 9221627 (Version 1)
Quarter: 2013Q1

REPORT INFORMATION
  Report Type: Spontaneous
  Country: US (occurrence: None)
  Receive Date: 20120831
  Receipt Date: 20120831
  Transmission Date: 20140127
  Serious: No
  Sender: FDA-Public Use
  Company Number: 1000036891

PATIENT
  Age: 85 Year
  Sex: Male

DRUGS (8)
  1. DALIRESP [Suspect]
     Indication: CHRONIC OBSTRUCTIVE PULMONARY DISEASE
     Route: 048
     Dates: start: 201111, end: 201202
  2. ADVAIR (SERETIDE)(SERETIDE) [Concomitant]
  3. FINASTERIDE(FINASTERIDE)(FINASTERIDE) [Concomitant]
  4. LASIX(FUROSEMIDE) [Concomitant]
  5. POTASSIUM(POTASSIUM)(POTASSIUM) [Concomitant]
  6. PRVASTATIN(PRAVASTATIN)(PRAVASTATIN) [Concomitant]
  7. BYSTOLIC(NEBIVOLOL HYDROCHLORIDE)(NEBIVOLOL HYDROCHLORIDE) [Concomitant]
  8. NORVASC(AMLODIPINE BESILATE)(AMLODIPINE BESILATE) [Concomitant]

REACTIONS (4)
  - Paraesthesia [None]
  - Feeling jittery [None]
  - Muscle spasms [None]
  - Insomnia [None]
